FAERS Safety Report 9957057 (Version 1)
Quarter: 2014Q1

REPORT INFORMATION
  Report Type: Report from Study
  Country: US (occurrence: US)
  Receive Date: 20140304
  Receipt Date: 20140304
  Transmission Date: 20141002
  Serious: No
  Sender: FDA-Public Use
  Company Number: US-ABBVIE-13P-163-1099415-00

PATIENT
  Age: 69 Year
  Sex: Female

DRUGS (8)
  1. HUMIRA [Suspect]
     Indication: PSORIASIS
     Dates: start: 201301
  2. SYNTHROID [Concomitant]
     Indication: THYROID DISORDER
     Dosage: 88MCG DAILY
  3. CYMBALTA [Concomitant]
     Indication: ANXIETY
     Dosage: 30MG DAILY
  4. SIMVASTATIN [Concomitant]
     Indication: BLOOD CHOLESTEROL
     Dosage: 20MG DAILY
  5. OMEPRAZOLE [Concomitant]
     Indication: GASTROOESOPHAGEAL REFLUX DISEASE
     Dosage: 20MG DAILY
  6. LISINOPRIL [Concomitant]
     Indication: HYPERTENSION
     Dosage: 5MG DAILY
  7. ZYRTEC [Concomitant]
     Indication: SEASONAL ALLERGY
     Dosage: DAILY
  8. VITAMINS AND CALCIUM [Concomitant]
     Indication: PRODUCT USED FOR UNKNOWN INDICATION
     Dosage: DAILY

REACTIONS (3)
  - Pollakiuria [Not Recovered/Not Resolved]
  - Dysuria [Not Recovered/Not Resolved]
  - Injection site reaction [Not Recovered/Not Resolved]
